FAERS Safety Report 19671099 (Version 4)
Quarter: 2022Q1

REPORT INFORMATION
  Report Type: Report from Study
  Country: US (occurrence: US)
  Receive Date: 20210806
  Receipt Date: 20220216
  Transmission Date: 20220423
  Serious: No
  Sender: FDA-Public Use
  Company Number: NVSC2021US176157

PATIENT
  Sex: Male

DRUGS (2)
  1. ENTRESTO [Suspect]
     Active Substance: SACUBITRIL\VALSARTAN
     Indication: Product used for unknown indication
     Dosage: 200 MG, BID (97/103 MG)
     Route: 048
     Dates: start: 2020
  2. FARXIGA [Concomitant]
     Active Substance: DAPAGLIFLOZIN PROPANEDIOL
     Dosage: UNK UNK, UNKNOWN
     Route: 065

REACTIONS (5)
  - Inappropriate schedule of product administration [Unknown]
  - Memory impairment [Unknown]
  - Influenza [Unknown]
  - Blood pressure increased [Unknown]
  - Blood pressure decreased [Recovering/Resolving]
